FAERS Safety Report 20083350 (Version 1)
Quarter: 2021Q4

REPORT INFORMATION
  Report Type: Spontaneous
  Country: FR (occurrence: FR)
  Receive Date: 20211117
  Receipt Date: 20211117
  Transmission Date: 20220303
  Serious: Yes (Hospitalization, Other)
  Sender: FDA-Public Use
  Company Number: None

PATIENT
  Age: 64 Year
  Sex: Female
  Weight: 108 kg

DRUGS (1)
  1. ELIQUIS [Suspect]
     Active Substance: APIXABAN
     Indication: Thrombosis prophylaxis
     Route: 048
     Dates: start: 20210928, end: 20211011

REACTIONS (6)
  - Thrombocytopenia [Recovered/Resolved]
  - Ecchymosis [Recovering/Resolving]
  - Adrenal haemorrhage [Recovering/Resolving]
  - Renal vein thrombosis [Recovering/Resolving]
  - Adrenal cortex necrosis [Not Recovered/Not Resolved]
  - Adrenal insufficiency [Recovering/Resolving]

NARRATIVE: CASE EVENT DATE: 20211006
